FAERS Safety Report 8378107-6 (Version None)
Quarter: 2012Q2

REPORT INFORMATION
  Report Type: 
  Country: None (occurrence: None)
  Receive Date: 20120522
  Receipt Date: 20120510
  Transmission Date: 20120825
  Serious: Yes (Hospitalization)
  Sender: FDA-Public Use
  Company Number: US-ACTELION-A-US2012-65812

PATIENT

DRUGS (4)
  1. TRACLEER [Suspect]
     Indication: PULMONARY ARTERIAL HYPERTENSION
     Dosage: UNK
     Route: 048
     Dates: start: 20080114
  2. ASPIRIN [Concomitant]
  3. CALCIUM CHANNEL BLOCKERS [Concomitant]
  4. OXYGEN [Concomitant]

REACTIONS (4)
  - DISEASE COMPLICATION [None]
  - BRONCHITIS [None]
  - DYSPNOEA [None]
  - ASTHMA [None]
